FAERS Safety Report 4674606-9 (Version None)
Quarter: 2005Q2

REPORT INFORMATION
  Report Type: 
  Country: None (occurrence: None)
  Receive Date: 20050526
  Receipt Date: 20050520
  Transmission Date: 20051028
  Serious: Yes (Other)
  Sender: FDA-Public Use
  Company Number: PHFR2005GB01894

PATIENT
  Age: 74 Year
  Sex: Female

DRUGS (2)
  1. EXELON [Suspect]
     Indication: DEMENTIA ALZHEIMER'S TYPE
     Dosage: 1.5 MG, QD
  2. BENDROFLUAZIDE [Concomitant]

REACTIONS (2)
  - DRUG INTOLERANCE [None]
  - HEPATITIS CHOLESTATIC [None]
